FAERS Safety Report 5100609-6 (Version None)
Quarter: 2006Q3

REPORT INFORMATION
  Report Type: 
  Country: None (occurrence: None)
  Receive Date: 20060907
  Receipt Date: 20060907
  Transmission Date: 20061208
  Serious: Yes (Other)
  Sender: FDA-Public Use
  Company Number: None

PATIENT
  Age: 35 Year
  Sex: Female
  Weight: 65.7716 kg

DRUGS (3)
  1. XYREM [Suspect]
     Indication: CATAPLEXY
     Dosage: 4.5 ML 2 PO
     Route: 048
     Dates: start: 20020901, end: 20031201
  2. XYREM [Suspect]
     Indication: NARCOLEPSY
     Dosage: 4.5 ML 2 PO
     Route: 048
     Dates: start: 20020901, end: 20031201
  3. DEXEDRINE [Concomitant]

REACTIONS (17)
  - ACNE CYSTIC [None]
  - ANXIETY [None]
  - CHRONIC SINUSITIS [None]
  - CONFUSIONAL STATE [None]
  - CRYING [None]
  - DEPRESSION [None]
  - DRUG DEPENDENCE [None]
  - DYSKINESIA [None]
  - EYE SWELLING [None]
  - FACE OEDEMA [None]
  - HALLUCINATION [None]
  - LOSS OF EMPLOYMENT [None]
  - MIDDLE INSOMNIA [None]
  - PARTNER STRESS [None]
  - SKIN DISCOLOURATION [None]
  - SOCIAL AVOIDANT BEHAVIOUR [None]
  - TREMOR [None]
